FAERS Safety Report 4429992-1 (Version None)
Quarter: 2004Q3

REPORT INFORMATION
  Report Type: 
  Country: None (occurrence: None)
  Receive Date: 20040818
  Receipt Date: 20040803
  Transmission Date: 20050211
  Serious: Yes (Death, Hospitalization)
  Sender: FDA-Public Use
  Company Number: 2004S1002264

PATIENT
  Age: 53 Year
  Sex: Male

DRUGS (13)
  1. MICARDIS [Suspect]
     Indication: HYPERTENSION
  2. COZAAR [Suspect]
  3. HUMAN INSULIN [Suspect]
     Indication: DIABETES MELLITUS
  4. HUMALOG [Suspect]
     Indication: DIABETES MELLITUS
  5. FUROSEMIDE [Concomitant]
     Indication: HYPERTENSION
  6. ZAROXOLYN [Suspect]
     Indication: FLUID RETENTION
  7. ZOLOFT [Suspect]
     Indication: DEPRESSION
  8. PLAVIX [Suspect]
     Indication: THROMBOSIS PROPHYLAXIS
  9. METOPROLOL SUCCINATE [Concomitant]
  10. ISOSORBIDE [Concomitant]
  11. SODIUM BICARBONATE [Concomitant]
  12. GABAPENTIN [Concomitant]
  13. BUTORPHANOL [Concomitant]

REACTIONS (5)
  - CARDIAC ARREST [None]
  - CARDIAC FAILURE CONGESTIVE [None]
  - HAEMODIALYSIS [None]
  - PNEUMONIA [None]
  - RENAL FAILURE CHRONIC [None]
